FAERS Safety Report 11349565 (Version 1)
Quarter: 2015Q3

REPORT INFORMATION
  Report Type: Spontaneous
  Country: US (occurrence: None)
  Receive Date: 20150805
  Receipt Date: 20150805
  Transmission Date: 20151125
  Serious: Yes (Hospitalization)
  Sender: FDA-Public Use
  Company Number: None

PATIENT
  Age: 64 Year
  Sex: Female
  Weight: 103 kg

DRUGS (14)
  1. ALEVE [Suspect]
     Active Substance: NAPROXEN SODIUM
     Indication: PAIN
     Dates: start: 20150628, end: 20150705
  2. ETANERCEPT [Concomitant]
     Active Substance: ETANERCEPT
  3. ALEVE [Suspect]
     Active Substance: NAPROXEN SODIUM
     Indication: RHEUMATOID ARTHRITIS
     Dates: start: 20150628, end: 20150705
  4. CALCIUM [Concomitant]
     Active Substance: CALCIUM
  5. METHOTREXATE [Concomitant]
     Active Substance: METHOTREXATE
  6. TELMISARTAN. [Concomitant]
     Active Substance: TELMISARTAN
  7. PHENTERMINE. [Concomitant]
     Active Substance: PHENTERMINE
  8. ATORVASTATIN [Concomitant]
     Active Substance: ATORVASTATIN
  9. PROBIOTIC [Concomitant]
     Active Substance: PROBIOTICS NOS
  10. VIMOVO [Concomitant]
     Active Substance: ESOMEPRAZOLE MAGNESIUM\NAPROXEN
  11. LORAZEPAM. [Concomitant]
     Active Substance: LORAZEPAM
  12. TYLENOL [Concomitant]
     Active Substance: ACETAMINOPHEN
  13. FOLIC ACID. [Concomitant]
     Active Substance: FOLIC ACID
  14. PRAVASTATIN [Concomitant]
     Active Substance: PRAVASTATIN\PRAVASTATIN SODIUM

REACTIONS (4)
  - Diverticulum [None]
  - Rectal haemorrhage [None]
  - Wrong technique in product usage process [None]
  - Incorrect dose administered [None]

NARRATIVE: CASE EVENT DATE: 20150705
